FAERS Safety Report 7658497-X (Version None)
Quarter: 2011Q3

REPORT INFORMATION
  Report Type: 
  Country: None (occurrence: None)
  Receive Date: 20110804
  Receipt Date: 20110804
  Transmission Date: 20111222
  Serious: Yes (Hospitalization)
  Sender: FDA-Public Use
  Company Number: None

PATIENT
  Age: 55 Year
  Sex: Male
  Weight: 111.8 kg

DRUGS (2)
  1. MORPHINE [Suspect]
     Indication: PAIN
     Dosage: 30 MG TID PO
     Route: 048
     Dates: start: 20091221, end: 20110707
  2. METOPROLOL TARTRATE [Suspect]
     Indication: HYPERTENSION
     Dosage: 12.5 MG BID PO
     Route: 048
     Dates: start: 20110526, end: 20110707

REACTIONS (7)
  - HYPOTENSION [None]
  - BRADYCARDIA [None]
  - INCOHERENT [None]
  - RESPIRATORY DEPRESSION [None]
  - CONFUSIONAL STATE [None]
  - HALLUCINATION [None]
  - LETHARGY [None]
